FAERS Safety Report 24722866 (Version 1)
Quarter: 2024Q4

REPORT INFORMATION
  Report Type: Spontaneous
  Country: US (occurrence: US)
  Receive Date: 20241211
  Receipt Date: 20241211
  Transmission Date: 20250115
  Serious: Yes (Other)
  Sender: BOEHRINGER INGELHEIM
  Company Number: US-Komodo Health-a23aa000004dJGcAAM

PATIENT
  Sex: Female

DRUGS (1)
  1. JARDIANCE [Suspect]
     Active Substance: EMPAGLIFLOZIN
     Indication: Type 2 diabetes mellitus
     Dosage: DAILY DOSE: 25 MILLIGRAM(S)

REACTIONS (2)
  - Spinal osteoarthritis [Unknown]
  - Ovarian cyst [Not Recovered/Not Resolved]
